FAERS Safety Report 13765169 (Version 1)
Quarter: 2017Q3

REPORT INFORMATION
  Report Type: Spontaneous
  Country: GB (occurrence: GB)
  Receive Date: 20170718
  Receipt Date: 20170718
  Transmission Date: 20171127
  Serious: Yes (Hospitalization, Other)
  Sender: FDA-Public Use
  Company Number: GB-PFIZER INC-2245092

PATIENT
  Age: 9 Year
  Sex: Male

DRUGS (4)
  1. CALCICHEW D3 [Concomitant]
     Active Substance: CALCIUM\CHOLECALCIFEROL
     Indication: PRODUCT USED FOR UNKNOWN INDICATION
  2. FOLIC ACID. [Concomitant]
     Active Substance: FOLIC ACID
     Indication: PRODUCT USED FOR UNKNOWN INDICATION
     Dosage: 5 MG, FREQ:1 WEEK;INTERVAL:1
  3. METHOTREXATE SODIUM. [Suspect]
     Active Substance: METHOTREXATE SODIUM
     Indication: CROHN^S DISEASE
     Dosage: 10 MG, FREQ:1 WEEK;INTERVAL:1
     Route: 048
     Dates: start: 20101220, end: 20140121
  4. AZATHIOPRINE. [Suspect]
     Active Substance: AZATHIOPRINE
     Indication: CROHN^S DISEASE
     Dosage: 1 MG, LATTERLY, 1G TWICE DAILY,FREQ:2 DAY;INTERVAL:1
     Route: 048
     Dates: start: 20070628, end: 20100524

REACTIONS (5)
  - Chloroma [Unknown]
  - Platelet count decreased [Unknown]
  - Vitamin D deficiency [Unknown]
  - Acute myeloid leukaemia [Not Recovered/Not Resolved]
  - Thrombosis [Unknown]

NARRATIVE: CASE EVENT DATE: 20140221
